FAERS Safety Report 16167533 (Version 1)
Quarter: 2019Q2

REPORT INFORMATION
  Report Type: Spontaneous
  Country: NL (occurrence: NL)
  Receive Date: 20190408
  Receipt Date: 20190408
  Transmission Date: 20190711
  Serious: Yes (Hospitalization)
  Sender: FDA-Public Use
  Company Number: NL-TEVA-2019-NL-1033939

PATIENT
  Age: 25 Month
  Sex: Male
  Weight: 10 kg

DRUGS (1)
  1. AMOXICILLINE [Suspect]
     Active Substance: AMOXICILLIN
     Indication: OTITIS MEDIA ACUTE
     Dosage: 50MG/ML, 3DD5ML
     Dates: start: 20190227, end: 20190304

REACTIONS (1)
  - Conversion disorder [Recovered/Resolved]

NARRATIVE: CASE EVENT DATE: 20190228
